FAERS Safety Report 9772416 (Version 2)
Quarter: 2013Q4

REPORT INFORMATION
  Report Type: Report from Study
  Country: FR (occurrence: FR)
  Receive Date: 20131219
  Receipt Date: 20131219
  Transmission Date: 20140711
  Serious: Yes (Death, Hospitalization)
  Sender: FDA-Public Use
  Company Number: FR-009507513-1012FRA00072

PATIENT
  Age: 46 Year
  Sex: Male

DRUGS (9)
  1. RALTEGRAVIR POTASSIUM [Suspect]
     Indication: HIV INFECTION
     Dosage: 400 MG, BID
     Route: 048
     Dates: start: 20100219, end: 20101128
  2. PREZISTA [Concomitant]
     Indication: HIV INFECTION
     Route: 048
  3. NORVIR [Concomitant]
     Indication: HIV INFECTION
     Route: 048
  4. REVATIO [Concomitant]
  5. AMLOR [Concomitant]
     Route: 048
  6. AVLOCARDYL [Concomitant]
  7. LASILIX [Concomitant]
  8. STILNOX [Concomitant]
  9. REVATIO [Concomitant]
     Indication: PULMONARY ARTERIAL HYPERTENSION

REACTIONS (1)
  - Cachexia [Fatal]
